FAERS Safety Report 9539607 (Version 1)
Quarter: 2013Q1

REPORT INFORMATION
  Report Type: Spontaneous
  Country: US (occurrence: None)
  Receive Date: 20130307
  Receipt Date: 20130307
  Transmission Date: 20140127
  Serious: Yes (Disabling, Other)
  Sender: FDA-Public Use
  Company Number: 533993

PATIENT
  Sex: Male

DRUGS (1)
  1. HEPARIN SODIUM [Suspect]
     Indication: PRODUCT USED FOR UNKNOWN INDICATION
     Dates: start: 200801

REACTIONS (10)
  - Gangrene [None]
  - Heparin-induced thrombocytopenia [None]
  - Thrombosis [None]
  - Deep vein thrombosis [None]
  - Ischaemia [None]
  - Necrosis [None]
  - Atrial fibrillation [None]
  - Oedema [None]
  - Infection [None]
  - Injury [None]
